FAERS Safety Report 4957471-1 (Version None)
Quarter: 2006Q1

REPORT INFORMATION
  Report Type: 
  Country: None (occurrence: None)
  Receive Date: 20060328
  Receipt Date: 20060328
  Transmission Date: 20060701
  Serious: Yes (Life-Threatening, Hospitalization, Other)
  Sender: FDA-Public Use
  Company Number: None

PATIENT
  Age: 35 Year
  Sex: Female
  Weight: 77.1115 kg

DRUGS (1)
  1. DEPO-MEDROL [Suspect]
     Indication: INTERVERTEBRAL DISC PROTRUSION
     Dosage: DEPO MEDROL ONCE A WEEK X 3 WK INTRADISCAL (INTRASPINAL)
     Route: 024
     Dates: start: 20060201, end: 20060224

REACTIONS (11)
  - CARDIAC DISORDER [None]
  - CHEST PAIN [None]
  - DISCOMFORT [None]
  - DYSPNOEA [None]
  - GENERALISED OEDEMA [None]
  - HEART RATE INCREASED [None]
  - HYPERTENSION [None]
  - PAIN IN EXTREMITY [None]
  - PULMONARY OEDEMA [None]
  - WEIGHT DECREASED [None]
  - WEIGHT INCREASED [None]
